FAERS Safety Report 6529213-X (Version None)
Quarter: 2010Q1

REPORT INFORMATION
  Report Type: 
  Country: None (occurrence: None)
  Receive Date: 20100107
  Receipt Date: 20091228
  Transmission Date: 20100710
  Serious: Yes (Other)
  Sender: FDA-Public Use
  Company Number: US-ROCHE-673541

PATIENT
  Age: 43 Year
  Sex: Male
  Weight: 93.9 kg

DRUGS (6)
  1. PEGASYS [Suspect]
     Indication: HEPATITIS C
     Route: 058
     Dates: start: 20090717
  2. COPEGUS [Suspect]
     Indication: HEPATITIS C
     Route: 048
     Dates: start: 20090717
  3. DICLOFENAC SODIUM [Concomitant]
  4. TRAMADOL [Concomitant]
     Indication: PAIN
     Route: 048
  5. HYDROXYZINE [Concomitant]
     Dosage: FREQUENCY: PPV
     Route: 048
  6. ZOLOFT [Concomitant]
     Indication: DEPRESSION
     Route: 048

REACTIONS (1)
  - DEEP VEIN THROMBOSIS [None]
